FAERS Safety Report 4381664-8 (Version None)
Quarter: 2004Q2

REPORT INFORMATION
  Report Type: 
  Country: None (occurrence: None)
  Receive Date: 20040615
  Receipt Date: 20040513
  Transmission Date: 20050107
  Serious: Yes (Hospitalization, Other)
  Sender: FDA-Public Use
  Company Number: KII-2004-0011220

PATIENT
  Sex: Male

DRUGS (6)
  1. MORPHINE SULFATE [Suspect]
     Dosage: SEE TEXT, ORAL
     Route: 048
  2. ACE INHIBITOR NOS() [Suspect]
     Dosage: SEE TEXT, ORAL
     Route: 048
  3. SERUMLIPIDREDUCING AGENTS() [Suspect]
     Dosage: SEE TEXT, ORAL
  4. HYDROCHLOROTHIAZIDE [Suspect]
  5. ETHANOL (ETHANOL) [Suspect]
     Dosage: SEE TEXT, ORAL
     Route: 048
  6. ANTI-ASTHMATIC TAB [Concomitant]

REACTIONS (6)
  - ALCOHOL POISONING [None]
  - BELLIGERENCE [None]
  - BLOOD PRESSURE DIASTOLIC DECREASED [None]
  - HEART RATE INCREASED [None]
  - MULTIPLE DRUG OVERDOSE [None]
  - OXYGEN SATURATION DECREASED [None]
